FAERS Safety Report 4310945-9 (Version None)
Quarter: 2004Q1

REPORT INFORMATION
  Report Type: 
  Country: None (occurrence: None)
  Receive Date: 20040302
  Receipt Date: 20040216
  Transmission Date: 20041129
  Serious: Yes (Hospitalization)
  Sender: FDA-Public Use
  Company Number: T03-GER-04806-01

PATIENT
  Age: 57 Year
  Sex: Female

DRUGS (1)
  1. ESCITALOPRAM OXALATE [Suspect]
     Indication: DEPRESSION
     Dosage: 10 MG QD PO
     Route: 048
     Dates: start: 20031028, end: 20031030

REACTIONS (6)
  - DIARRHOEA [None]
  - DRUG INEFFECTIVE [None]
  - HYPERTENSION [None]
  - HYPERTENSIVE CRISIS [None]
  - TACHYCARDIA [None]
  - WEIGHT DECREASED [None]
